FAERS Safety Report 10367886 (Version 1)
Quarter: 2014Q3

REPORT INFORMATION
  Report Type: Spontaneous
  Country: RO (occurrence: None)
  Receive Date: 20140805
  Receipt Date: 20140805
  Transmission Date: 20150326
  Serious: Yes (Hospitalization)
  Sender: FDA-Public Use
  Company Number: FK201403096

PATIENT
  Age: 59 Year
  Sex: Female

DRUGS (2)
  1. ETANERCEPT (ETANERCEPT) (ETANERCEPT) [Suspect]
     Active Substance: ETANERCEPT
     Indication: RHEUMATOID ARTHRITIS
  2. METHOTREXATE (METHOTREXATE) (METHOTREXATE) [Suspect]
     Active Substance: METHOTREXATE
     Indication: RHEUMATOID ARTHRITIS

REACTIONS (4)
  - Staphylococcal infection [None]
  - Cardiac murmur [None]
  - Lichen planus [None]
  - Hypertrophic cardiomyopathy [None]
